FAERS Safety Report 21727554 (Version 1)
Quarter: 2022Q4

REPORT INFORMATION
  Report Type: Spontaneous
  Country: IT (occurrence: IT)
  Receive Date: 20221214
  Receipt Date: 20221214
  Transmission Date: 20230113
  Serious: Yes (Life-Threatening, Other)
  Sender: FDA-Public Use
  Company Number: IT-PFIZER INC-202201354203

PATIENT
  Age: 64 Year
  Sex: Male

DRUGS (2)
  1. AXITINIB [Suspect]
     Active Substance: AXITINIB
     Indication: Renal cell carcinoma
     Dosage: 5 MG, 2X/DAY (BID), (3 WEEKLY)
     Dates: start: 202103
  2. PEMBROLIZUMAB [Suspect]
     Active Substance: PEMBROLIZUMAB
     Indication: Renal cell carcinoma
     Dosage: 200 MG, CYCLIC (3 WEEKLY)
     Dates: start: 202103

REACTIONS (7)
  - Thyroiditis [Recovered/Resolved]
  - Hypophysitis [Recovered/Resolved]
  - Disease progression [Unknown]
  - Blood pressure abnormal [Recovered/Resolved]
  - Hypoacusis [Unknown]
  - Fatigue [Unknown]
  - Mood altered [Unknown]
